FAERS Safety Report 7602731-9 (Version None)
Quarter: 2011Q3

REPORT INFORMATION
  Report Type: 
  Country: None (occurrence: None)
  Receive Date: 20110711
  Receipt Date: 20110711
  Transmission Date: 20111222
  Serious: Yes (Hospitalization)
  Sender: FDA-Public Use
  Company Number: None

PATIENT
  Age: 80 Year
  Sex: Male
  Weight: 68.0396 kg

DRUGS (2)
  1. DAPTOMYCIN [Suspect]
     Indication: ENDOCARDITIS ENTEROCOCCAL
     Dosage: 420MG DAILY IV
     Route: 042
     Dates: start: 20110506, end: 20110527
  2. DAPTOMYCIN [Suspect]
     Indication: ENDOCARDITIS STAPHYLOCOCCAL
     Dosage: 420MG DAILY IV
     Route: 042
     Dates: start: 20110506, end: 20110527

REACTIONS (1)
  - EOSINOPHILIC PNEUMONIA [None]
